FAERS Safety Report 24142337 (Version 2)
Quarter: 2024Q3

REPORT INFORMATION
  Report Type: Report from Study
  Country: TR (occurrence: TR)
  Receive Date: 20240726
  Receipt Date: 20240918
  Transmission Date: 20241017
  Serious: Yes (Death)
  Sender: PFIZER
  Company Number: TR-PFIZER INC-PV202400097206

PATIENT
  Sex: Male

DRUGS (1)
  1. ELRANATAMAB [Suspect]
     Active Substance: ELRANATAMAB
     Dosage: UNK

REACTIONS (1)
  - Mucormycosis [Fatal]

NARRATIVE: CASE EVENT DATE: 20240530
